FAERS Safety Report 5331896-7 (Version None)
Quarter: 2007Q2

REPORT INFORMATION
  Report Type: 
  Country: None (occurrence: None)
  Receive Date: 20070523
  Receipt Date: 20070515
  Transmission Date: 20071010
  Serious: Yes (Other)
  Sender: FDA-Public Use
  Company Number: JP-BAYER-200610864BYL

PATIENT
  Age: 58 Year
  Sex: Male

DRUGS (3)
  1. ASPIRIN [Suspect]
     Indication: CEREBRAL INFARCTION
     Dosage: TOTAL DAILY DOSE: 100 MG  UNIT DOSE: 100 MG
     Route: 048
     Dates: start: 20060320, end: 20060701
  2. SERMION [Concomitant]
     Route: 048
     Dates: start: 20060320
  3. THYRADIN S [Concomitant]
     Route: 048
     Dates: start: 20060320

REACTIONS (1)
  - THROMBOCYTOPENIA [None]
